FAERS Safety Report 10725183 (Version 1)
Quarter: 2015Q1

REPORT INFORMATION
  Report Type: Spontaneous
  Country: US (occurrence: US)
  Receive Date: 20150120
  Receipt Date: 20150120
  Transmission Date: 20150721
  Serious: Yes (Hospitalization, Other)
  Sender: FDA-Public Use
  Company Number: US-GLAXOSMITHKLINE-US2015GSK005623

PATIENT
  Age: 24 Year
  Sex: Female

DRUGS (1)
  1. VALACYCLOVIR [Suspect]
     Active Substance: VALACYCLOVIR HYDROCHLORIDE
     Indication: GENITAL HERPES
     Dosage: 1000 MG, BID

REACTIONS (5)
  - Hypertension [Unknown]
  - Confusional state [Unknown]
  - Clumsiness [Unknown]
  - Tremor [Unknown]
  - Neurotoxicity [Unknown]
